FAERS Safety Report 8867321 (Version 1)
Quarter: 2012Q4

REPORT INFORMATION
  Report Type: 
  Country: US (occurrence: US)
  Receive Date: 20121025
  Receipt Date: 20121025
  Transmission Date: 20130627
  Serious: No
  Sender: FDA-Public Use
  Company Number: US-AMGEN-USASP2012015830

PATIENT
  Sex: Female

DRUGS (7)
  1. ENBREL [Suspect]
     Indication: PRODUCT USED FOR UNKNOWN INDICATION
     Dosage: 50 mg, qwk
     Route: 058
     Dates: start: 200802
  2. GAVISCON CHEWABLE [Concomitant]
  3. VALIUM                             /00017001/ [Concomitant]
     Dosage: 2 mg, UNK
  4. HYZAAR [Concomitant]
  5. METHOTREXATE [Concomitant]
  6. FOLIC ACID [Concomitant]
     Dosage: 1 mg, UNK
  7. LIPITOR [Concomitant]
     Dosage: 10 mg, UNK

REACTIONS (6)
  - Oedema peripheral [Unknown]
  - Pain in extremity [Unknown]
  - Joint swelling [Unknown]
  - Arthralgia [Unknown]
  - Rash erythematous [Unknown]
  - Bacterial infection [Unknown]
